FAERS Safety Report 8852959 (Version 3)
Quarter: 2013Q1

REPORT INFORMATION
  Report Type: Spontaneous
  Country: DE (occurrence: DE)
  Receive Date: 20121022
  Receipt Date: 20130329
  Transmission Date: 20140127
  Serious: Yes (Hospitalization, Other)
  Sender: FDA-Public Use
  Company Number: DE-ABBOTT-12P-062-0994900-00

PATIENT
  Age: 42 None
  Sex: Female

DRUGS (7)
  1. HUMIRA [Suspect]
     Indication: CROHN^S DISEASE
     Route: 058
     Dates: start: 20120402, end: 20130306
  2. IRON [Concomitant]
     Indication: PRODUCT USED FOR UNKNOWN INDICATION
  3. CALCIUM [Concomitant]
     Indication: PRODUCT USED FOR UNKNOWN INDICATION
  4. PANTOZOL [Concomitant]
  5. RAMIPRIL [Concomitant]
     Indication: PRODUCT USED FOR UNKNOWN INDICATION
  6. VITAMIN D [Concomitant]
     Indication: PRODUCT USED FOR UNKNOWN INDICATION
  7. MIRTAZAPINE [Concomitant]

REACTIONS (8)
  - Ileus [Recovering/Resolving]
  - Pneumothorax [Not Recovered/Not Resolved]
  - Suture rupture [Not Recovered/Not Resolved]
  - Peritonitis [Not Recovered/Not Resolved]
  - Coma [Recovered/Resolved]
  - Liver abscess [Not Recovered/Not Resolved]
  - Malaise [Unknown]
  - Hepatic enzyme increased [Not Recovered/Not Resolved]
